FAERS Safety Report 16695989 (Version 1)
Quarter: 2019Q3

REPORT INFORMATION
  Report Type: Spontaneous
  Country: IE (occurrence: IE)
  Receive Date: 20190813
  Receipt Date: 20190813
  Transmission Date: 20191004
  Serious: Yes (Other)
  Sender: FDA-Public Use
  Company Number: IE-VISTAPHARM, INC.-VER201908-000751

PATIENT
  Age: 2 Year
  Sex: Male
  Weight: 11.6 kg

DRUGS (4)
  1. ALBUTEROL. [Suspect]
     Active Substance: ALBUTEROL
     Indication: COUGH
     Dosage: UNKNOWN
  2. ALBUTEROL. [Suspect]
     Active Substance: ALBUTEROL
  3. AMOXICILLIN. [Concomitant]
     Active Substance: AMOXICILLIN
     Indication: PRODUCT USED FOR UNKNOWN INDICATION
     Dosage: UNKNOWN
     Route: 042
  4. ALBUTEROL. [Suspect]
     Active Substance: ALBUTEROL
     Dosage: UNKNOWN

REACTIONS (1)
  - Condition aggravated [None]
